FAERS Safety Report 17660908 (Version 1)
Quarter: 2020Q2

REPORT INFORMATION
  Report Type: Spontaneous
  Country: US (occurrence: US)
  Receive Date: 20200411
  Receipt Date: 20200411
  Transmission Date: 20200713
  Serious: Yes (Life-Threatening, Hospitalization)
  Sender: FDA-Public Use
  Company Number: None

PATIENT
  Age: 18 Year
  Sex: Female
  Weight: 58.5 kg

DRUGS (8)
  1. RISPERDAL [Suspect]
     Active Substance: RISPERIDONE
     Indication: IRRITABILITY
     Route: 048
     Dates: start: 20191101, end: 20200106
  2. OMEGA 3 SUPPLEMENTS [Concomitant]
  3. GABAPENTIN. [Concomitant]
     Active Substance: GABAPENTIN
  4. LAMICTAL [Concomitant]
     Active Substance: LAMOTRIGINE
  5. PROPRANOLOL [Concomitant]
     Active Substance: PROPRANOLOL HYDROCHLORIDE
  6. RISPERDAL [Suspect]
     Active Substance: RISPERIDONE
     Indication: BORDERLINE PERSONALITY DISORDER
     Route: 048
     Dates: start: 20191101, end: 20200106
  7. HALDOL [Suspect]
     Active Substance: HALOPERIDOL
     Indication: PANIC ATTACK
     Dosage: ?         ?
     Route: 048
  8. RISPERDAL [Suspect]
     Active Substance: RISPERIDONE
     Indication: GENERALISED ANXIETY DISORDER
     Route: 048
     Dates: start: 20191101, end: 20200106

REACTIONS (13)
  - Feeling abnormal [None]
  - Suicidal ideation [None]
  - Energy increased [None]
  - Disturbance in attention [None]
  - Agitation [None]
  - Restlessness [None]
  - Balance disorder [None]
  - Quality of life decreased [None]
  - Akathisia [None]
  - Crying [None]
  - Fall [None]
  - Movement disorder [None]
  - Paraesthesia [None]

NARRATIVE: CASE EVENT DATE: 20200214
